FAERS Safety Report 9908314 (Version 1)
Quarter: 2013Q2

REPORT INFORMATION
  Report Type: Spontaneous
  Country: US (occurrence: None)
  Receive Date: 20130305
  Receipt Date: 20130305
  Transmission Date: 20140414
  Serious: Yes (Other)
  Sender: FDA-Public Use
  Company Number: 163-21880-12123241

PATIENT
  Age: 53 Year
  Sex: Male
  Weight: 98.39 kg

DRUGS (20)
  1. REVLIMID (LENALIDOMIDE) (25 MILLIGRAM, CAPSULES) [Suspect]
     Indication: PLASMA CELL MYELOMA
     Dosage: 21 IN 21 D
     Route: 048
     Dates: start: 20100916
  2. SINGULAIR (MONTELUKAST SODIUM) TABLET [Concomitant]
  3. DEXAMETHASONE [Concomitant]
  4. METHOTREXATE [Concomitant]
  5. PREDNISONE [Concomitant]
  6. NASONEX (MOMETASONE FUROATE) [Concomitant]
  7. AMOXICILLIN [Concomitant]
  8. AZITHROMYCIN [Concomitant]
  9. RANITIDINE [Concomitant]
  10. FENOFIBRATE [Concomitant]
  11. FOLIC ACID [Concomitant]
  12. CIPROFLOXACIN [Concomitant]
  13. OMEPRAZOLE [Concomitant]
  14. WARFARIN [Concomitant]
  15. VICODIN [Concomitant]
  16. METHYLPREDNISOLONE [Concomitant]
  17. CEFUROXIME [Concomitant]
  18. METAXALONE [Concomitant]
  19. BENICAR (OLMESARTAN MEDOXOMIL) [Concomitant]
  20. HUMIRA (ADALIMUMAB) OPEN LABEL [Concomitant]

REACTIONS (1)
  - Tremor [None]
